FAERS Safety Report 16835720 (Version 1)
Quarter: 2019Q3

REPORT INFORMATION
  Report Type: Spontaneous
  Country: US (occurrence: US)
  Receive Date: 20190920
  Receipt Date: 20190920
  Transmission Date: 20191005
  Serious: No
  Sender: FDA-Public Use
  Company Number: US-SLATE RUN PHARMACEUTICALS-SLTR-AE-19-77

PATIENT
  Sex: Female

DRUGS (1)
  1. POTASSIUM CHLORIDE ER TABLET USP [Suspect]
     Active Substance: POTASSIUM CHLORIDE
     Indication: HYPOKALAEMIA

REACTIONS (1)
  - Abdominal discomfort [Unknown]
